FAERS Safety Report 25316733 (Version 2)
Quarter: 2025Q2

REPORT INFORMATION
  Report Type: Spontaneous
  Country: US (occurrence: US)
  Receive Date: 20250515
  Receipt Date: 20250610
  Transmission Date: 20250717
  Serious: No
  Sender: GRANULES PHARMACEUTICALS INC
  Company Number: US-GRANULES-US-2025GRASPO00217

PATIENT
  Sex: Female

DRUGS (1)
  1. ACETAMINOPHEN [Suspect]
     Active Substance: ACETAMINOPHEN
     Indication: Pain
     Route: 065

REACTIONS (2)
  - Drug ineffective [Unknown]
  - Product label issue [Unknown]
